FAERS Safety Report 20499278 (Version 1)
Quarter: 2022Q1

REPORT INFORMATION
  Report Type: Spontaneous
  Country: FR (occurrence: FR)
  Receive Date: 20220222
  Receipt Date: 20220222
  Transmission Date: 20220423
  Serious: Yes (Death, Other)
  Sender: FDA-Public Use
  Company Number: FR-AFSSAPS-CN20180901

PATIENT
  Age: 80 Year
  Sex: Male
  Weight: 89 kg

DRUGS (10)
  1. ALLOPURINOL [Suspect]
     Active Substance: ALLOPURINOL
     Indication: Infection
     Dosage: 100 MILLIGRAM, ONCE A DAY
     Route: 048
     Dates: start: 20180303, end: 20180320
  2. MEROPENEM [Suspect]
     Active Substance: MEROPENEM
     Indication: Infection
     Dosage: 1 GRAM, ONCE A DAY
     Route: 042
     Dates: start: 20180307, end: 20180319
  3. WARFARIN SODIUM [Suspect]
     Active Substance: WARFARIN SODIUM
     Indication: Atrial fibrillation
     Dosage: EN FONCTION INR
     Route: 048
     Dates: start: 20180317, end: 20180323
  4. MAGNESIUM [Suspect]
     Active Substance: MAGNESIUM
     Indication: Hypomagnesaemia
     Dosage: 1 SACHET LE SOIR (1 PACKET IN THE EVENING)
     Route: 048
     Dates: start: 20180308, end: 20180321
  5. DOLIPRANE [Suspect]
     Active Substance: ACETAMINOPHEN
     Indication: Pain
     Dosage: 1 GRAM, AS NECESSARY, 1 GRAMME SI BESOIN
     Route: 048
     Dates: start: 20180305, end: 20180323
  6. PIPERACILLIN SODIUM\TAZOBACTAM SODIUM [Suspect]
     Active Substance: PIPERACILLIN SODIUM\TAZOBACTAM SODIUM
     Indication: Infection
     Dosage: 4 GRAM, ONCE A DAY, 4 G LE MATIN
     Route: 042
     Dates: start: 20180228, end: 20180301
  7. CUBICIN [Suspect]
     Active Substance: DAPTOMYCIN
     Indication: Infection
     Dosage: 880 MILLIGRAM, TWO TIMES A DAY
     Route: 042
     Dates: start: 20180228, end: 20180303
  8. CLOXACILLIN SODIUM [Suspect]
     Active Substance: CLOXACILLIN SODIUM
     Indication: Infection
     Dosage: 8 GRAM, ONCE A DAY
     Route: 042
     Dates: start: 20180303, end: 20180307
  9. GENTAMICIN [Suspect]
     Active Substance: GENTAMICIN
     Indication: Infection
     Dosage: 5 MILLIGRAM/KILOGRAM
     Route: 042
     Dates: start: 20180228, end: 20180301
  10. ESIDREX [Suspect]
     Active Substance: HYDROCHLOROTHIAZIDE
     Indication: Cardiac failure
     Dosage: 12.5 MILLIGRAM, ONCE A DAY
     Route: 048
     Dates: start: 20180317, end: 20180319

REACTIONS (2)
  - Death [Fatal]
  - Rash [Not Recovered/Not Resolved]

NARRATIVE: CASE EVENT DATE: 20180317
